FAERS Safety Report 22021558 (Version 1)
Quarter: 2023Q1

REPORT INFORMATION
  Report Type: Report from Study
  Country: HU (occurrence: HU)
  Receive Date: 20230222
  Receipt Date: 20230222
  Transmission Date: 20230417
  Serious: Yes (Hospitalization, Other)
  Sender: FDA-Public Use
  Company Number: HU-Merck Healthcare KGaA-9383344

PATIENT
  Age: 61 Year
  Sex: Female

DRUGS (3)
  1. CETUXIMAB [Suspect]
     Active Substance: CETUXIMAB
     Indication: Cholangiocarcinoma
     Dosage: UNK UNK, UNKNOWN
     Route: 065
     Dates: start: 20230206
  2. GEMCITABINE [Suspect]
     Active Substance: GEMCITABINE
     Indication: Cholangiocarcinoma
     Dosage: UNK UNK, UNKNOWN
     Route: 065
     Dates: start: 20230206
  3. CAPECITABINE [Suspect]
     Active Substance: CAPECITABINE
     Indication: Cholangiocarcinoma
     Dosage: UNK UNK, UNKNOWN
     Route: 065
     Dates: start: 20230206

REACTIONS (13)
  - General physical health deterioration [Unknown]
  - Ascites [Unknown]
  - White blood cell count increased [Unknown]
  - C-reactive protein increased [Unknown]
  - Blood urea increased [Unknown]
  - Blood bilirubin increased [Unknown]
  - Bilirubin conjugated increased [Unknown]
  - Gamma-glutamyltransferase increased [Unknown]
  - Procalcitonin increased [Unknown]
  - Blood sodium decreased [Unknown]
  - Alanine aminotransferase increased [Unknown]
  - Aspartate aminotransferase increased [Unknown]
  - Off label use [Unknown]
